FAERS Safety Report 13490877 (Version 2)
Quarter: 2017Q2

REPORT INFORMATION
  Report Type: Spontaneous
  Country: PL (occurrence: PL)
  Receive Date: 20170427
  Receipt Date: 20170602
  Transmission Date: 20170830
  Serious: Yes (Other)
  Sender: FDA-Public Use
  Company Number: PL-TEVA-762353ROM

PATIENT
  Age: 36 Year
  Sex: Male

DRUGS (4)
  1. DACARBAZINE. [Suspect]
     Active Substance: DACARBAZINE
     Indication: HODGKIN^S DISEASE
     Dosage: A+AVD PROTOCOL BASED CHEMOTHERAPY
     Route: 065
     Dates: start: 20140722
  2. DOXORUBICIN [Suspect]
     Active Substance: DOXORUBICIN
     Indication: HODGKIN^S DISEASE
     Dosage: A+AVD PROTOCOL BASED CHEMOTHERAPY
     Route: 065
     Dates: start: 20140722
  3. VINBLASTINE [Suspect]
     Active Substance: VINBLASTINE
     Indication: HODGKIN^S DISEASE
     Dosage: A+AVD PROTOCOL BASED CHEMOTHERAPY
     Route: 065
     Dates: start: 20140722
  4. BRENTUXIMAB VEDOTIN [Suspect]
     Active Substance: BRENTUXIMAB VEDOTIN
     Indication: HODGKIN^S DISEASE
     Dosage: A+AVD PROTOCOL BASED CHEMOTHERAPY
     Route: 065
     Dates: start: 20140722

REACTIONS (2)
  - Neutropenia [Unknown]
  - Sinusitis [Unknown]

NARRATIVE: CASE EVENT DATE: 2014
